FAERS Safety Report 18245822 (Version 1)
Quarter: 2020Q3

REPORT INFORMATION
  Report Type: Spontaneous
  Country: US (occurrence: US)
  Receive Date: 20200909
  Receipt Date: 20200909
  Transmission Date: 20201103
  Serious: Yes (Other)
  Sender: FDA-Public Use
  Company Number: US-GLAXOSMITHKLINE-US2020176982

PATIENT
  Age: 65 Year
  Sex: Male

DRUGS (3)
  1. SHINGRIX [Suspect]
     Active Substance: RECOMBINANT VARICELLA ZOSTER VIRUS (VZV) GLYCOPROTEIN E
     Indication: PROPHYLAXIS
     Dates: start: 20191201
  2. SHINGRIX [Suspect]
     Active Substance: RECOMBINANT VARICELLA ZOSTER VIRUS (VZV) GLYCOPROTEIN E
     Indication: PROPHYLAXIS
  3. NUCALA [Suspect]
     Active Substance: MEPOLIZUMAB
     Indication: PROPHYLAXIS
     Route: 058
     Dates: start: 20190601, end: 20200601

REACTIONS (3)
  - Herpes zoster [Not Recovered/Not Resolved]
  - Vaccination failure [Unknown]
  - Post herpetic neuralgia [Not Recovered/Not Resolved]

NARRATIVE: CASE EVENT DATE: 20200615
